FAERS Safety Report 19048425 (Version 1)
Quarter: 2021Q1

REPORT INFORMATION
  Report Type: Spontaneous
  Country: US (occurrence: US)
  Receive Date: 20210323
  Receipt Date: 20210323
  Transmission Date: 20210420
  Serious: Yes (Other)
  Sender: FDA-Public Use
  Company Number: US-BAYER-2021-103843

PATIENT
  Age: 69 Year
  Sex: Male

DRUGS (4)
  1. BAYER LOW DOSE [Suspect]
     Active Substance: ASPIRIN
     Indication: PRODUCT USED FOR UNKNOWN INDICATION
     Route: 048
  2. IMBRUVICA [Suspect]
     Active Substance: IBRUTINIB
     Indication: CHRONIC LYMPHOCYTIC LEUKAEMIA
     Dosage: 420 MG, QD
     Route: 048
     Dates: start: 201901
  3. XARELTO [Suspect]
     Active Substance: RIVAROXABAN
  4. IMBRUVICA [Suspect]
     Active Substance: IBRUTINIB
     Indication: CHRONIC LYMPHOCYTIC LEUKAEMIA
     Dosage: 140 UNK
     Dates: start: 202007

REACTIONS (6)
  - Contusion [Recovering/Resolving]
  - Rash macular [Unknown]
  - Skin infection [Recovering/Resolving]
  - Increased tendency to bruise [Not Recovered/Not Resolved]
  - Haemorrhage [Recovering/Resolving]
  - Pruritus [Recovering/Resolving]
